FAERS Safety Report 15844640 (Version 1)
Quarter: 2019Q1

REPORT INFORMATION
  Report Type: Report from Study
  Country: US (occurrence: US)
  Receive Date: 20190118
  Receipt Date: 20190118
  Transmission Date: 20190417
  Serious: Yes (Other)
  Sender: FDA-Public Use
  Company Number: US-GILEAD-2019-0385560

PATIENT
  Age: 67 Year
  Sex: Male

DRUGS (9)
  1. AZTREONAM LYSINE [Suspect]
     Active Substance: AZTREONAM LYSINE
     Indication: CYSTIC FIBROSIS
     Dosage: 75 MG
     Route: 055
  2. CARVEDILOL. [Concomitant]
     Active Substance: CARVEDILOL
  3. KALYDECO [Concomitant]
     Active Substance: IVACAFTOR
  4. FLUTICASONE. [Concomitant]
     Active Substance: FLUTICASONE
  5. PRAVASTATIN. [Concomitant]
     Active Substance: PRAVASTATIN
  6. ALLOPURINOL. [Concomitant]
     Active Substance: ALLOPURINOL
  7. VELTASSA [Concomitant]
     Active Substance: PATIROMER
  8. TAMSULOSIN [Concomitant]
     Active Substance: TAMSULOSIN
  9. MEROPENEM. [Concomitant]
     Active Substance: MEROPENEM

REACTIONS (1)
  - Skin cancer [Not Recovered/Not Resolved]
